FAERS Safety Report 8502066-6 (Version None)
Quarter: 2012Q3

REPORT INFORMATION
  Report Type: 
  Country: None (occurrence: None)
  Receive Date: 20120702
  Receipt Date: 20120622
  Transmission Date: 20120928
  Serious: Yes (Other)
  Sender: FDA-Public Use
  Company Number: 120253

PATIENT
  Age: 21 Month
  Sex: Male
  Weight: 12 kg

DRUGS (2)
  1. GOLYTELY [Suspect]
     Indication: OFF LABEL USE
     Dosage: 50ML/HR, 2DAYS, NG
     Dates: start: 20120612, end: 20120614
  2. XOPENEX [Concomitant]

REACTIONS (5)
  - HYPOKALAEMIA [None]
  - ANGIOEDEMA [None]
  - CARDIAC MURMUR [None]
  - SWELLING FACE [None]
  - OEDEMA PERIPHERAL [None]
